FAERS Safety Report 4727050-X (Version None)
Quarter: 2005Q3

REPORT INFORMATION
  Report Type: 
  Country: None (occurrence: None)
  Receive Date: 20050726
  Receipt Date: 20050719
  Transmission Date: 20060218
  Serious: Yes (Hospitalization, Other)
  Sender: FDA-Public Use
  Company Number: 200511867BCC

PATIENT
  Age: 52 Year
  Sex: Male
  Weight: 92.9874 kg

DRUGS (2)
  1. ASPIRIN [Suspect]
     Indication: MYOCARDIAL INFARCTION
     Dosage: SEE IMAGE, ORAL
     Route: 048
     Dates: start: 19730101
  2. ASPIRIN [Suspect]
     Indication: PROPHYLAXIS
     Dosage: SEE IMAGE, ORAL
     Route: 048
     Dates: start: 19730101

REACTIONS (5)
  - CARDIAC ARREST [None]
  - CORONARY ARTERY OCCLUSION [None]
  - FATIGUE [None]
  - MYOCARDIAL INFARCTION [None]
  - VASCULAR BYPASS GRAFT [None]
